FAERS Safety Report 6243223-1 (Version None)
Quarter: 2009Q2

REPORT INFORMATION
  Report Type: 
  Country: None (occurrence: None)
  Receive Date: 20090622
  Receipt Date: 20090622
  Transmission Date: 20091009
  Serious: Yes (Other)
  Sender: FDA-Public Use
  Company Number: None

PATIENT
  Age: 59 Year
  Sex: Female
  Weight: 77.1115 kg

DRUGS (1)
  1. LEVAQUIN [Suspect]
     Indication: BRONCHITIS
     Dosage: 1 TAB DAILY PO
     Route: 048
     Dates: start: 20090520, end: 20090524

REACTIONS (14)
  - ARTHRALGIA [None]
  - ARTHRITIS [None]
  - BLOOD POTASSIUM DECREASED [None]
  - DIARRHOEA [None]
  - GAIT DISTURBANCE [None]
  - HYPOAESTHESIA [None]
  - JOINT SWELLING [None]
  - MUSCULAR WEAKNESS [None]
  - PARAESTHESIA [None]
  - SKIN BURNING SENSATION [None]
  - TENDON INJURY [None]
  - TENDON PAIN [None]
  - TONGUE DISORDER [None]
  - WEIGHT BEARING DIFFICULTY [None]
